FAERS Safety Report 24120497 (Version 1)
Quarter: 2024Q3

REPORT INFORMATION
  Report Type: Spontaneous
  Country: GB (occurrence: GB)
  Receive Date: 20240722
  Receipt Date: 20240722
  Transmission Date: 20241017
  Serious: Yes (Other)
  Sender: MYLAN
  Company Number: GB-MHRA-TPP6097652C11287755YC1721128438805

PATIENT
  Age: 69 Year
  Sex: Female
  Weight: 65 kg

DRUGS (5)
  1. MIRTAZAPINE [Suspect]
     Active Substance: MIRTAZAPINE
     Indication: Product used for unknown indication
     Dosage: 15 MILLIGRAM, PM (AT NIGHT)
     Route: 065
     Dates: start: 20240702
  2. BETAMETHASONE VALERATE [Concomitant]
     Active Substance: BETAMETHASONE VALERATE
     Dosage: UNK, (MODERATE POTENCY STEROID OINTMENT -  APPLY ONCE...)
     Route: 065
     Dates: start: 20240702
  3. CLOBETASONE BUTYRATE [Concomitant]
     Active Substance: CLOBETASONE BUTYRATE
     Dosage: UNK, (MODERATE POTENCY STEROID OINTMENT - APPLY ONCE ...)
     Route: 065
     Dates: start: 20240702
  4. LORATADINE [Concomitant]
     Active Substance: LORATADINE
     Dosage: 1 DOSAGE FORM, QD
     Route: 065
     Dates: start: 20240702
  5. ESTRADIOL [Concomitant]
     Active Substance: ESTRADIOL
     Dosage: 1 DOSAGE FORM
     Route: 065
     Dates: start: 20230403

REACTIONS (3)
  - Loss of consciousness [Unknown]
  - Myalgia [Recovered/Resolved]
  - Dizziness [Unknown]
